FAERS Safety Report 8595578-0 (Version None)
Quarter: 2012Q3

REPORT INFORMATION
  Report Type: 
  Country: None (occurrence: None)
  Receive Date: 20120815
  Receipt Date: 20100719
  Transmission Date: 20120928
  Serious: Yes (Other)
  Sender: FDA-Public Use
  Company Number: CO-PFIZER INC-2012198587

PATIENT
  Age: 73 Year
  Sex: Female

DRUGS (5)
  1. FUROSEMIDE [Concomitant]
     Dosage: 40 MG, 1X/DAY
  2. AMLODIPINE [Concomitant]
     Dosage: 5 MG, 2X/DAY
  3. LIPITOR [Suspect]
     Dosage: 10 MG, 1X/DAY
  4. ASPIRIN [Concomitant]
     Dosage: 100 MG, 1X/DAY
  5. LOSARTAN [Concomitant]
     Dosage: 100 MG, 2X/DAY

REACTIONS (1)
  - HYPERTENSIVE EMERGENCY [None]
